FAERS Safety Report 9303058 (Version 7)
Quarter: 2015Q1

REPORT INFORMATION
  Report Type: Report from Study
  Country: JP (occurrence: JP)
  Receive Date: 20130522
  Receipt Date: 20150204
  Transmission Date: 20150721
  Serious: Yes (Disabling, Other)
  Sender: FDA-Public Use
  Company Number: JP-AMGEN-JPNCT2013035969

PATIENT
  Age: 74 Year
  Sex: Male
  Weight: 68 kg

DRUGS (14)
  1. DARBEPOETIN ALFA - KHK [Suspect]
     Active Substance: DARBEPOETIN ALFA
     Indication: NEPHROGENIC ANAEMIA
     Dosage: 60 MUG, QD
     Route: 058
     Dates: start: 20110413
  2. OLMETEC [Concomitant]
     Active Substance: OLMESARTAN MEDOXOMIL
     Dosage: UNK
     Route: 048
  3. WARFARIN [Concomitant]
     Active Substance: WARFARIN
     Dosage: UNK
     Route: 048
  4. PARIET [Concomitant]
     Active Substance: RABEPRAZOLE SODIUM
     Dosage: UNK
     Route: 048
  5. D-SORBITOL [Concomitant]
     Dosage: UNK
     Route: 048
  6. ALOSITOL [Concomitant]
     Active Substance: ALLOPURINOL
     Dosage: UNK
     Route: 048
  7. CONIEL [Concomitant]
     Active Substance: BENIDIPINE HYDROCHLORIDE
     Dosage: UNK
     Route: 048
  8. CRESTOR [Concomitant]
     Active Substance: ROSUVASTATIN CALCIUM
     Dosage: UNK
     Route: 048
  9. TANKARU [Concomitant]
     Dosage: UNK
     Route: 048
  10. DIART [Concomitant]
     Active Substance: AZOSEMIDE
     Dosage: UNK
     Route: 048
  11. LASIX [Concomitant]
     Active Substance: FUROSEMIDE
     Indication: PRODUCT USED FOR UNKNOWN INDICATION
     Dosage: UNK
     Route: 048
  12. FEBURIC [Concomitant]
     Active Substance: FEBUXOSTAT
     Dosage: UNK
     Route: 048
  13. ADALAT CC [Concomitant]
     Active Substance: NIFEDIPINE
     Dosage: UNK
     Route: 048
  14. ARGAMATE [Concomitant]
     Active Substance: POLYSTYRENE
     Dosage: UNK
     Route: 048

REACTIONS (3)
  - Protein urine present [Unknown]
  - Renal impairment [Recovered/Resolved]
  - Renal impairment [Not Recovered/Not Resolved]

NARRATIVE: CASE EVENT DATE: 20120105
